FAERS Safety Report 10081970 (Version 2)
Quarter: 2014Q2

REPORT INFORMATION
  Report Type: Spontaneous
  Country: US (occurrence: None)
  Receive Date: 20140414
  Receipt Date: 20140502
  Transmission Date: 20141212
  Serious: Yes (Other)
  Sender: FDA-Public Use
  Company Number: 2014P1002919

PATIENT
  Age: 18 Year
  Sex: Male
  Weight: 73.03 kg

DRUGS (1)
  1. MYORISAN [Suspect]
     Indication: ACNE
     Route: 048
     Dates: start: 20131015, end: 20140314

REACTIONS (10)
  - Affective disorder [None]
  - Depression [None]
  - Blood cholesterol increased [None]
  - Low density lipoprotein increased [None]
  - High density lipoprotein increased [None]
  - Blood calcium increased [None]
  - Aspartate aminotransferase increased [None]
  - Blood albumin increased [None]
  - Red blood cell count decreased [None]
  - Eosinophil count decreased [None]
